FAERS Safety Report 10496695 (Version 3)
Quarter: 2018Q4

REPORT INFORMATION
  Report Type: Report from Study
  Country: US (occurrence: US)
  Receive Date: 20141006
  Receipt Date: 20181016
  Transmission Date: 20190204
  Serious: Yes (Other)
  Sender: FDA-Public Use
  Company Number: US-AMGEN-USASP2014074645

PATIENT
  Age: 54 Year
  Sex: Female

DRUGS (1)
  1. ENBREL [Suspect]
     Active Substance: ETANERCEPT
     Indication: RHEUMATOID ARTHRITIS
     Dosage: 50 MG, QWK
     Route: 065
     Dates: start: 20100901

REACTIONS (11)
  - Arthralgia [Recovered/Resolved]
  - Musculoskeletal pain [Recovered/Resolved]
  - Rash [Not Recovered/Not Resolved]
  - Herpes zoster [Recovered/Resolved]
  - Condition aggravated [Recovered/Resolved]
  - Asthma [Recovered/Resolved]
  - Dermatitis contact [Recovered/Resolved]
  - Pharyngitis [Recovered/Resolved]
  - Sinusitis [Recovered/Resolved]
  - Pain in extremity [Recovered/Resolved]
  - Pharyngeal abscess [Recovered/Resolved]

NARRATIVE: CASE EVENT DATE: 201406
